FAERS Safety Report 8953094 (Version 2)
Quarter: 2014Q1

REPORT INFORMATION
  Report Type: Report from Study
  Country: US (occurrence: US)
  Receive Date: 20121205
  Receipt Date: 20140228
  Transmission Date: 20141002
  Serious: Yes (Hospitalization, Other)
  Sender: FDA-Public Use
  Company Number: US-ACTELION-A-NJ2012-75126

PATIENT
  Age: 75 Year
  Sex: Female

DRUGS (5)
  1. TRACLEER [Suspect]
     Indication: PULMONARY ARTERIAL HYPERTENSION
     Dosage: 62.5 MG, BID
     Route: 048
     Dates: start: 20120326
  2. TRACLEER [Suspect]
     Dosage: UNK
     Route: 048
     Dates: start: 20081124
  3. PLAVIX [Concomitant]
  4. FUROSEMIDE [Concomitant]
  5. NITROGLYCERIN [Concomitant]

REACTIONS (8)
  - Gastric ulcer [Recovering/Resolving]
  - Melaena [Recovering/Resolving]
  - Ulcer haemorrhage [Recovering/Resolving]
  - Packed red blood cell transfusion [Recovering/Resolving]
  - Anaemia [Recovering/Resolving]
  - Asthenia [Recovering/Resolving]
  - Dizziness [Recovering/Resolving]
  - Fatigue [Recovering/Resolving]
